FAERS Safety Report 10072031 (Version 1)
Quarter: 2014Q2

REPORT INFORMATION
  Report Type: Spontaneous
  Country: NL (occurrence: NL)
  Receive Date: 20140411
  Receipt Date: 20140411
  Transmission Date: 20141212
  Serious: Yes (Other)
  Sender: FDA-Public Use
  Company Number: NL-AMGEN-NLDSP2014025224

PATIENT
  Age: 52 Year
  Sex: Female

DRUGS (1)
  1. NEULASTA [Suspect]
     Indication: PROPHYLAXIS
     Dosage: 10 MG/ML, WWSP 0.6 ML, EVERY 3 WEEKS
     Route: 058
     Dates: start: 20140319, end: 20140404

REACTIONS (1)
  - Drug hypersensitivity [Unknown]
